FAERS Safety Report 10629078 (Version 3)
Quarter: 2016Q2

REPORT INFORMATION
  Report Type: Spontaneous
  Country: US (occurrence: US)
  Receive Date: 20141205
  Receipt Date: 20160419
  Transmission Date: 20160815
  Serious: No
  Sender: FDA-Public Use
  Company Number: US-BRISTOL-MYERS SQUIBB COMPANY-21321104

PATIENT
  Age: 29 Year
  Sex: Male
  Weight: 81.72 kg

DRUGS (4)
  1. ABILIFY MAINTENA [Suspect]
     Active Substance: ARIPIPRAZOLE
     Dosage: 400 MG, Q4WK
     Route: 030
     Dates: start: 20140424
  2. INVEGA [Concomitant]
     Active Substance: PALIPERIDONE
     Indication: PRODUCT USED FOR UNKNOWN INDICATION
     Route: 065
  3. ABILIFY [Suspect]
     Active Substance: ARIPIPRAZOLE
     Indication: PRODUCT USED FOR UNKNOWN INDICATION
     Dosage: ORAL ABILIFY 5 MG DAILY ON 24-APR-2014 FOR TEN DAYS.
     Route: 048
     Dates: start: 20140424
  4. ABILIFY MAINTENA [Suspect]
     Active Substance: ARIPIPRAZOLE
     Indication: PRODUCT USED FOR UNKNOWN INDICATION
     Dosage: 400 MG, Q4WK
     Route: 030
     Dates: start: 20140424

REACTIONS (4)
  - Breast enlargement [Unknown]
  - Rash [Recovered/Resolved]
  - Injection site pruritus [Recovering/Resolving]
  - Hyperprolactinaemia [Unknown]

NARRATIVE: CASE EVENT DATE: 20140424
